FAERS Safety Report 23066768 (Version 3)
Quarter: 2023Q4

REPORT INFORMATION
  Report Type: Spontaneous
  Country: US (occurrence: US)
  Receive Date: 20231016
  Receipt Date: 20231204
  Transmission Date: 20240110
  Serious: Yes (Hospitalization, Other)
  Sender: FDA-Public Use
  Company Number: US-AMGEN-USASP2023181069

PATIENT
  Age: 39 Year
  Sex: Female

DRUGS (2)
  1. AIMOVIG [Suspect]
     Active Substance: ERENUMAB-AOOE
     Indication: Brain oedema
     Dosage: 140 MILLIGRAM, QMO
     Route: 065
     Dates: start: 202309
  2. AIMOVIG [Suspect]
     Active Substance: ERENUMAB-AOOE
     Indication: Off label use
     Dosage: 140 MILLIGRAM, QMO
     Route: 065
     Dates: end: 2023

REACTIONS (9)
  - Hospitalisation [Unknown]
  - Pneumonia [Recovering/Resolving]
  - Malaise [Recovering/Resolving]
  - Urticaria [Recovering/Resolving]
  - Dyspnoea [Recovering/Resolving]
  - Dysarthria [Recovering/Resolving]
  - Drug dose omission by device [Unknown]
  - Device difficult to use [Unknown]
  - Off label use [Unknown]

NARRATIVE: CASE EVENT DATE: 20230101
